FAERS Safety Report 19450962 (Version 1)
Quarter: 2021Q2

REPORT INFORMATION
  Report Type: Spontaneous
  Country: GB (occurrence: GB)
  Receive Date: 20210622
  Receipt Date: 20210622
  Transmission Date: 20210717
  Serious: Yes (Other)
  Sender: FDA-Public Use
  Company Number: GB-PFIZER INC-2021690458

PATIENT
  Age: 47 Year
  Sex: Female
  Weight: 58.06 kg

DRUGS (3)
  1. BENZOYL PEROXIDE. [Suspect]
     Active Substance: BENZOYL PEROXIDE
     Indication: ACNE
     Dosage: APPLIED TO WHOLE FACE EVERY NIGHT EXCEPT FOR 0.5CM AROUND THE EYES
     Route: 061
     Dates: start: 20210520, end: 20210606
  2. ADAPALENE. [Suspect]
     Active Substance: ADAPALENE
     Indication: ACNE
     Dosage: APPLIED TO WHOLE FACE EVERY NIGHT EXCEPT FOR 0.5CM AROUND THE EYES
     Route: 061
     Dates: start: 20210520, end: 20210606
  3. CLINDAMYCIN PHOSPHATE. [Suspect]
     Active Substance: CLINDAMYCIN PHOSPHATE
     Indication: ACNE
     Dosage: APPLIED TO WHOLE FACE EVERY NIGHT EXCEPT FOR 0.5CM AROUND THE EYES
     Route: 061
     Dates: start: 20210520, end: 20210606

REACTIONS (3)
  - Dry skin [Unknown]
  - Swelling face [Recovering/Resolving]
  - Erythema [Unknown]

NARRATIVE: CASE EVENT DATE: 20210607
